FAERS Safety Report 24899196 (Version 1)
Quarter: 2025Q1

REPORT INFORMATION
  Report Type: Spontaneous
  Country: GB (occurrence: GB)
  Receive Date: 20250129
  Receipt Date: 20250129
  Transmission Date: 20250409
  Serious: Yes (Other)
  Sender: RANBAXY
  Company Number: GB-SUN PHARMACEUTICAL INDUSTRIES LTD-2025RR-489713

PATIENT
  Age: 65 Year
  Sex: Male
  Weight: 78 kg

DRUGS (12)
  1. PREGABALIN [Suspect]
     Active Substance: PREGABALIN
     Indication: Product used for unknown indication
     Route: 065
     Dates: start: 20241210, end: 20241223
  2. ACETAMINOPHEN [Concomitant]
     Active Substance: ACETAMINOPHEN
     Indication: Product used for unknown indication
     Route: 065
     Dates: start: 20241119
  3. MORPHINE [Concomitant]
     Active Substance: MORPHINE
     Indication: Product used for unknown indication
     Route: 065
     Dates: start: 20241204
  4. PREGABALIN [Concomitant]
     Active Substance: PREGABALIN
     Indication: Product used for unknown indication
     Route: 065
     Dates: start: 20241210, end: 20250102
  5. Scheriproct suppositories (Karo Healthcare UK Ltd) [Concomitant]
     Indication: Product used for unknown indication
     Route: 065
     Dates: start: 20241210
  6. Scheriproct suppositories (Karo Healthcare UK Ltd) [Concomitant]
     Indication: Product used for unknown indication
     Route: 065
     Dates: start: 20241211
  7. Fortisip Bottle banana (Nutricia Ltd) [Concomitant]
     Indication: Product used for unknown indication
     Route: 065
     Dates: start: 20250102
  8. Fortisip Bottle strawberry (Nutricia Ltd) [Concomitant]
     Indication: Product used for unknown indication
     Route: 065
     Dates: start: 20250102
  9. Fortisip Bottle vanilla (Nutricia Ltd) [Concomitant]
     Indication: Product used for unknown indication
     Route: 065
     Dates: start: 20250102
  10. Cavilon Durable barrier cream (3M Health Care Ltd) [Concomitant]
     Indication: Product used for unknown indication
     Route: 065
     Dates: start: 20241015, end: 20241127
  11. Scheriproct suppositories (Karo Healthcare UK Ltd) [Concomitant]
     Indication: Product used for unknown indication
     Route: 065
     Dates: start: 20241015, end: 20241127
  12. IBUPROFEN [Concomitant]
     Active Substance: IBUPROFEN
     Indication: Product used for unknown indication
     Route: 065
     Dates: start: 20241023

REACTIONS (1)
  - Swollen tongue [Recovered/Resolved]

NARRATIVE: CASE EVENT DATE: 20241223
